FAERS Safety Report 23529178 (Version 1)
Quarter: 2024Q1

REPORT INFORMATION
  Report Type: Spontaneous
  Country: US (occurrence: US)
  Receive Date: 20240216
  Receipt Date: 20240216
  Transmission Date: 20240410
  Serious: No
  Sender: FDA-Public Use
  Company Number: US-GILEAD-2024-0662259

PATIENT
  Sex: Male

DRUGS (1)
  1. EPCLUSA [Suspect]
     Active Substance: SOFOSBUVIR\VELPATASVIR
     Indication: Hepatitis C
     Dosage: UNK (4 WEEKS TOTAL)
     Route: 065

REACTIONS (3)
  - Night sweats [Unknown]
  - Chromaturia [Unknown]
  - Hepatitis C virus test positive [Unknown]
